FAERS Safety Report 7981298-X (Version None)
Quarter: 2011Q4

REPORT INFORMATION
  Report Type: 
  Country: None (occurrence: None)
  Receive Date: 20111215
  Receipt Date: 20111212
  Transmission Date: 20120403
  Serious: No
  Sender: FDA-Public Use
  Company Number: US-PFIZER INC-2011302675

PATIENT
  Sex: Female

DRUGS (1)
  1. IBUPROFEN (ADVIL) [Suspect]
     Indication: PAIN IN EXTREMITY
     Dosage: 400 MG, 1X/DAY
     Route: 048
     Dates: start: 20111205, end: 20111205

REACTIONS (5)
  - RASH MACULAR [None]
  - PRURITUS [None]
  - RASH [None]
  - URTICARIA [None]
  - BLEPHAROSPASM [None]
